FAERS Safety Report 7105804-2 (Version None)
Quarter: 2010Q4

REPORT INFORMATION
  Report Type: 
  Country: None (occurrence: None)
  Receive Date: 20101116
  Receipt Date: 20101105
  Transmission Date: 20110411
  Serious: Yes (Hospitalization)
  Sender: FDA-Public Use
  Company Number: US-JNJFOC-20101103281

PATIENT
  Sex: Male
  Weight: 86.09 kg

DRUGS (4)
  1. INFLIXIMAB, RECOMBINANT [Suspect]
     Indication: INFLAMMATORY BOWEL DISEASE
     Route: 042
  2. ANTIBIOTICS NOS [Concomitant]
     Indication: INFLAMMATORY BOWEL DISEASE
  3. THALIDOMIDE [Concomitant]
  4. ATIVAN [Concomitant]

REACTIONS (4)
  - FAECALOMA [None]
  - IMPETIGO [None]
  - PILONIDAL CYST [None]
  - STREPTOCOCCAL ABSCESS [None]
